FAERS Safety Report 9646277 (Version 3)
Quarter: 2014Q1

REPORT INFORMATION
  Report Type: Spontaneous
  Country: JP (occurrence: JP)
  Receive Date: 20131025
  Receipt Date: 20140101
  Transmission Date: 20141002
  Serious: Yes (Hospitalization, Other)
  Sender: FDA-Public Use
  Company Number: PHHY2013JP120489

PATIENT
  Sex: Male

DRUGS (3)
  1. VALPROIC ACID [Suspect]
     Indication: EPILEPSY
     Dosage: UNK UKN, UNK
  2. CARBAMAZEPINE [Suspect]
     Indication: EPILEPSY
     Route: 048
  3. L CARNITIN                         /06169901/ [Concomitant]

REACTIONS (4)
  - Hypoglycaemia [Unknown]
  - Carnitine deficiency [Unknown]
  - Depressed level of consciousness [Unknown]
  - Hyperammonaemia [Unknown]
